FAERS Safety Report 25478244 (Version 1)
Quarter: 2025Q2

REPORT INFORMATION
  Report Type: Spontaneous
  Country: US (occurrence: None)
  Receive Date: 20250625
  Receipt Date: 20250625
  Transmission Date: 20250716
  Serious: Yes (Hospitalization)
  Sender: FDA-CTU
  Company Number: None

PATIENT
  Age: 61 Year
  Sex: Male
  Weight: 105.78 kg

DRUGS (2)
  1. XELODA [Suspect]
     Active Substance: CAPECITABINE
     Dosage: FREQUENCY : TWICE A DAY;?
     Dates: end: 20250615
  2. ELOXATIN [Suspect]
     Active Substance: OXALIPLATIN
     Dates: end: 20250609

REACTIONS (5)
  - Cholecystitis [None]
  - Nephrolithiasis [None]
  - Bile duct stone [None]
  - Malignant peritoneal neoplasm [None]
  - Hepatic cancer [None]

NARRATIVE: CASE EVENT DATE: 20250617
